FAERS Safety Report 7014267-7 (Version None)
Quarter: 2010Q3

REPORT INFORMATION
  Report Type: 
  Country: None (occurrence: None)
  Receive Date: 20100927
  Receipt Date: 20100915
  Transmission Date: 20110219
  Serious: Yes (Other)
  Sender: FDA-Public Use
  Company Number: BR-JNJFOC-20100905574

PATIENT
  Age: 21 Year
  Sex: Male

DRUGS (1)
  1. REMICADE [Suspect]
     Indication: ANKYLOSING SPONDYLITIS
     Route: 042

REACTIONS (4)
  - BLOOD PRESSURE INCREASED [None]
  - BREAST PAIN [None]
  - INFUSION RELATED REACTION [None]
  - MEMORY IMPAIRMENT [None]
